FAERS Safety Report 15992544 (Version 3)
Quarter: 2019Q2

REPORT INFORMATION
  Report Type: Spontaneous
  Country: ES (occurrence: ES)
  Receive Date: 20190221
  Receipt Date: 20190401
  Transmission Date: 20190711
  Serious: Yes (Hospitalization, Other)
  Sender: FDA-Public Use
  Company Number: ES-MYLANLABS-2018M1079693

PATIENT
  Age: 82 Year
  Sex: Male

DRUGS (5)
  1. INSULIN GLARGINE [Concomitant]
     Active Substance: INSULIN GLARGINE
     Indication: PRODUCT USED FOR UNKNOWN INDICATION
     Dosage: UNK
     Route: 065
  2. VORICONAZOLE. [Suspect]
     Active Substance: VORICONAZOLE
     Indication: SCEDOSPORIUM INFECTION
     Dosage: 400 MG,Q12H, (ON DAY 1, FOLLOWED BY 200 MG/12 HOUR DOSE ON THE FOLLOWING DAYS)
     Route: 048
  3. VORICONAZOLE. [Suspect]
     Active Substance: VORICONAZOLE
     Indication: CUTANEOUS SPOROTRICHOSIS
     Dosage: 200 MG, Q12H
     Route: 048
  4. OXYCODONE/NALOXONE SANDOZ [Concomitant]
     Indication: PRODUCT USED FOR UNKNOWN INDICATION
     Dosage: UNK
  5. VORICONAZOLE. [Suspect]
     Active Substance: VORICONAZOLE
     Indication: DERMATITIS BULLOUS
     Dosage: 200 MG, Q12H
     Route: 065

REACTIONS (2)
  - Product use in unapproved indication [Unknown]
  - Hyponatraemia [Recovered/Resolved]
